FAERS Safety Report 4518628-7 (Version None)
Quarter: 2004Q4

REPORT INFORMATION
  Report Type: 
  Country: None (occurrence: None)
  Receive Date: 20041104
  Receipt Date: 20040105
  Transmission Date: 20050328
  Serious: Yes (Hospitalization)
  Sender: FDA-Public Use
  Company Number: US_040199677

PATIENT
  Age: 67 Year
  Sex: Male

DRUGS (3)
  1. VANCOMYCIN [Suspect]
     Indication: INFECTION
     Dosage: 1 G/2 DAY
     Dates: end: 20021028
  2. LISINOPRIL [Concomitant]
  3. FUROSEMIDE [Concomitant]

REACTIONS (1)
  - RENAL FAILURE ACUTE [None]
